FAERS Safety Report 19514027 (Version 3)
Quarter: 2021Q4

REPORT INFORMATION
  Report Type: Report from Study
  Country: CN (occurrence: None)
  Receive Date: 20210709
  Receipt Date: 20211221
  Transmission Date: 20220303
  Serious: Yes (Hospitalization)
  Sender: FDA-Public Use
  Company Number: CN-ROCHE-2860835

PATIENT
  Age: 57 Year
  Sex: Female
  Weight: 52 kg

DRUGS (32)
  1. ATEZOLIZUMAB [Suspect]
     Active Substance: ATEZOLIZUMAB
     Indication: Small cell lung cancer extensive stage
     Dosage: ON 02/JUN/2021, MOST RECENT DOSE OF ATEZOLIZUMAB WAS ADMINISTERED.
     Route: 041
     Dates: start: 20210602
  2. CISPLATIN [Suspect]
     Active Substance: CISPLATIN
     Indication: Small cell lung cancer extensive stage
     Dosage: ON 04/JUN/2021, MOST RECENT DOSE OF CISPLATIN WERE ADMINISTERED.
     Route: 042
     Dates: start: 20210602
  3. ETOPOSIDE [Suspect]
     Active Substance: ETOPOSIDE
     Indication: Small cell lung cancer extensive stage
     Dosage: ON 04/JUN/2021, MOST RECENT DOSE OF ETOPOSIDE WAS ADMINISTERED.
     Route: 042
     Dates: start: 20210602
  4. RUPATADINE FUMARATE [Concomitant]
     Active Substance: RUPATADINE FUMARATE
     Dates: start: 20210606
  5. CALAMINE [Concomitant]
     Active Substance: CALAMINE\FERRIC OXIDE RED\ZINC OXIDE
     Dates: start: 20210608
  6. DEXAMETHASONE SODIUM PHOSPHATE [Concomitant]
     Active Substance: DEXAMETHASONE SODIUM PHOSPHATE
     Dates: start: 20210608
  7. CEFOXITIN SODIUM [Concomitant]
     Active Substance: CEFOXITIN SODIUM
     Dates: start: 20210619, end: 20210619
  8. LEUCOGEN (CHINA) [Concomitant]
     Dates: start: 20210616
  9. ROXITHROMYCIN [Concomitant]
     Active Substance: ROXITHROMYCIN
     Dates: start: 20210618, end: 20210619
  10. CEFTAZIDIME [Concomitant]
     Active Substance: CEFTAZIDIME
     Dates: start: 20210622, end: 20210628
  11. ESOMEPRAZOLE SODIUM [Concomitant]
     Active Substance: ESOMEPRAZOLE SODIUM
     Dates: start: 20210621, end: 20210625
  12. ESOMEPRAZOLE SODIUM [Concomitant]
     Active Substance: ESOMEPRAZOLE SODIUM
     Dates: start: 20210812, end: 20210817
  13. RABEPRAZOLE SODIUM [Concomitant]
     Active Substance: RABEPRAZOLE SODIUM
     Dates: start: 20210626, end: 20210701
  14. RABEPRAZOLE SODIUM [Concomitant]
     Active Substance: RABEPRAZOLE SODIUM
     Dates: start: 20210620, end: 20210725
  15. DOLASETRON MESYLATE [Concomitant]
     Active Substance: DOLASETRON MESYLATE
     Dates: start: 20210701, end: 20210702
  16. DOLASETRON MESYLATE [Concomitant]
     Active Substance: DOLASETRON MESYLATE
     Dates: start: 20210722, end: 20210724
  17. DOLASETRON MESYLATE [Concomitant]
     Active Substance: DOLASETRON MESYLATE
     Dates: start: 20210817, end: 20210817
  18. NICOTINAMIDE [Concomitant]
     Active Substance: NIACINAMIDE
     Dates: start: 20210701, end: 20210705
  19. NICOTINAMIDE [Concomitant]
     Active Substance: NIACINAMIDE
     Dates: start: 20210720, end: 20210725
  20. NICOTINAMIDE [Concomitant]
     Active Substance: NIACINAMIDE
     Dates: start: 20210812, end: 20210817
  21. DICLOFENAC SODIUM [Concomitant]
     Active Substance: DICLOFENAC SODIUM
     Dates: start: 20210622, end: 20210622
  22. TROPISETRON HYDROCHLORIDE AND SODIUM CHLORIDE [Concomitant]
     Dates: start: 20210630, end: 20210630
  23. TROPISETRON HYDROCHLORIDE AND SODIUM CHLORIDE [Concomitant]
     Dates: start: 20210721, end: 20210721
  24. TROPISETRON HYDROCHLORIDE AND SODIUM CHLORIDE [Concomitant]
     Dates: start: 20210723, end: 20210723
  25. GLYCERIN [Concomitant]
     Active Substance: GLYCERIN
     Dates: end: 20210701
  26. GRANULOCYTE COLONY-STIMULATING FACTOR NOS [Concomitant]
     Active Substance: GRANULOCYTE COLONY-STIMULATING FACTOR NOS
     Dates: start: 20210704, end: 20210704
  27. INOSINE [Concomitant]
     Active Substance: INOSINE
     Dates: start: 20210720, end: 20210721
  28. PALONOSETRON HYDROCHLORIDE [Concomitant]
     Active Substance: PALONOSETRON HYDROCHLORIDE
     Dates: start: 20210723, end: 20210725
  29. LAFUTIDINE [Concomitant]
     Active Substance: LAFUTIDINE
     Dates: start: 20210722, end: 20210727
  30. GLYCERIN [Concomitant]
     Active Substance: GLYCERIN
     Dates: start: 20210722, end: 20210724
  31. FAMOTIDINE [Concomitant]
     Active Substance: FAMOTIDINE
     Dates: start: 20210813, end: 20210817
  32. AZASETRON HYDROCHLORIDE AND SODIUM CHLORIDE [Concomitant]
     Dates: start: 20210813, end: 20210816

REACTIONS (1)
  - Brain oedema [Recovered/Resolved]

NARRATIVE: CASE EVENT DATE: 20210617
